FAERS Safety Report 17719953 (Version 2)
Quarter: 2020Q2

REPORT INFORMATION
  Report Type: Spontaneous
  Country: ES (occurrence: ES)
  Receive Date: 20200428
  Receipt Date: 20200507
  Transmission Date: 20200714
  Serious: Yes (Other)
  Sender: FDA-Public Use
  Company Number: ES-JNJFOC-20200435070

PATIENT
  Age: 80 Year
  Sex: Female

DRUGS (2)
  1. RIVAROXABAN [Suspect]
     Active Substance: RIVAROXABAN
     Indication: HEART RATE INCREASED
     Dosage: 20 MG
     Route: 048
     Dates: start: 20191001, end: 20200424
  2. BISOPROLOL [Concomitant]
     Active Substance: BISOPROLOL
     Indication: ARRHYTHMIA
     Dates: start: 20191001, end: 20200424

REACTIONS (6)
  - Off label use [Unknown]
  - Dyspnoea [Not Recovered/Not Resolved]
  - Choking sensation [Not Recovered/Not Resolved]
  - Product use in unapproved indication [Unknown]
  - Asphyxia [Recovering/Resolving]
  - Headache [Unknown]

NARRATIVE: CASE EVENT DATE: 2020
